FAERS Safety Report 6203931-5 (Version None)
Quarter: 2009Q2

REPORT INFORMATION
  Report Type: 
  Country: None (occurrence: None)
  Receive Date: 20090527
  Receipt Date: 20090518
  Transmission Date: 20091009
  Serious: Yes (Death, Hospitalization)
  Sender: FDA-Public Use
  Company Number: A0785927A

PATIENT
  Sex: Female

DRUGS (5)
  1. SERETIDE [Suspect]
     Indication: CHRONIC OBSTRUCTIVE PULMONARY DISEASE
     Dosage: 2PUFF TWICE PER DAY
     Route: 055
     Dates: start: 20070101, end: 20090321
  2. ATROVENT [Concomitant]
     Dates: start: 20070101, end: 20090321
  3. SIMVASTATIN [Concomitant]
     Dates: start: 20060101, end: 20090321
  4. MONOCORDIL [Concomitant]
     Dates: start: 20060101, end: 20090321
  5. ALDACTONE [Concomitant]

REACTIONS (1)
  - PNEUMONIA [None]
